FAERS Safety Report 6939971-8 (Version None)
Quarter: 2010Q3

REPORT INFORMATION
  Report Type: 
  Country: None (occurrence: None)
  Receive Date: 20100825
  Receipt Date: 20100813
  Transmission Date: 20110219
  Serious: Yes (Other)
  Sender: FDA-Public Use
  Company Number: US-PFIZER INC-2010083656

PATIENT
  Age: 85 Year
  Sex: Male
  Weight: 99.79 kg

DRUGS (1)
  1. SUTENT [Suspect]
     Indication: RENAL CANCER
     Dosage: 25 MG, 1X/DAY, 4 WEEKS ON AND THEN 2 WEEKS OFF
     Route: 048
     Dates: start: 20100510

REACTIONS (3)
  - HEADACHE [None]
  - HYPOTHYROIDISM [None]
  - VISION BLURRED [None]
